FAERS Safety Report 5120343-6 (Version None)
Quarter: 2006Q4

REPORT INFORMATION
  Report Type: 
  Country: None (occurrence: None)
  Receive Date: 20061004
  Receipt Date: 20040818
  Transmission Date: 20070319
  Serious: Yes (Death, Other)
  Sender: FDA-Public Use
  Company Number: PHHO2004CO11733

PATIENT
  Age: 21 Year
  Sex: Female

DRUGS (10)
  1. TRILEPTAL [Suspect]
     Indication: EPILEPSY
     Dosage: 600MG EVERY 12 HOURS
     Route: 048
     Dates: start: 20030301
  2. TRILEPTAL [Suspect]
     Dosage: 1800MG DAILY
     Route: 048
  3. TRILEPTAL [Suspect]
     Dosage: 2400MG DAILY
     Route: 048
     Dates: start: 20040801
  4. TRILEPTAL [Suspect]
     Dosage: 600MG X3
     Route: 048
  5. TRILEPTAL [Suspect]
     Dosage: 300MG X6
     Route: 048
  6. TRILEPTAL [Suspect]
     Dosage: NO TREATMENT
     Dates: start: 20041003, end: 20041003
  7. TRILEPTAL [Suspect]
     Route: 048
  8. VALPROIC ACID [Concomitant]
  9. CARBAMAZEPINE [Suspect]
  10. FOLIC ACID [Concomitant]

REACTIONS (6)
  - ASPIRATION BRONCHIAL [None]
  - CONVULSION [None]
  - PHARMACEUTICAL PRODUCT COMPLAINT [None]
  - PREGNANCY [None]
  - SOMNOLENCE [None]
  - TREATMENT NONCOMPLIANCE [None]
